FAERS Safety Report 5711843-6 (Version None)
Quarter: 2008Q2

REPORT INFORMATION
  Report Type: 
  Country: None (occurrence: None)
  Receive Date: 20080421
  Receipt Date: 20080417
  Transmission Date: 20081010
  Serious: Yes (Death)
  Sender: FDA-Public Use
  Company Number: SE-BOEHRINGER INGELHEIM GMBH, GERMANY-2008-DE-02337GD

PATIENT

DRUGS (3)
  1. NAPROXEN [Suspect]
  2. ACETYLSALICYLIC ACID SRT [Suspect]
  3. DALTEPARIN SODIUM [Suspect]

REACTIONS (2)
  - HAEMORRHAGE [None]
  - NERVOUS SYSTEM DISORDER [None]
